FAERS Safety Report 11754314 (Version 1)
Quarter: 2015Q4

REPORT INFORMATION
  Report Type: Spontaneous
  Country: US (occurrence: US)
  Receive Date: 20151119
  Receipt Date: 20151119
  Transmission Date: 20160304
  Serious: No
  Sender: FDA-Public Use
  Company Number: US-MYLANLABS-2015M1024417

PATIENT
  Age: 47 Year
  Sex: Female
  Weight: 77.98 kg

DRUGS (4)
  1. DIAZIDE                            /00007602/ [Concomitant]
     Indication: BLOOD PRESSURE INCREASED
     Dosage: 37.5/25 MG, QD
     Route: 048
     Dates: start: 1987
  2. ALLOPURINOL TABLETS, USP [Suspect]
     Active Substance: ALLOPURINOL
     Indication: GOUT
     Dosage: 300 MG, QD
     Route: 048
     Dates: start: 20150531, end: 20150622
  3. FUROSEMIDE. [Concomitant]
     Active Substance: FUROSEMIDE
     Indication: BLOOD PRESSURE INCREASED
     Dosage: 40 MG, QD
     Route: 048
     Dates: start: 1987
  4. POTASSIUM [Concomitant]
     Active Substance: POTASSIUM
     Dosage: 20 MEQ, UNK
     Route: 048
     Dates: start: 1987

REACTIONS (6)
  - Nausea [Recovered/Resolved]
  - Mouth swelling [Recovered/Resolved]
  - Chills [Recovered/Resolved]
  - Malaise [Recovered/Resolved]
  - Rash [Recovering/Resolving]
  - Dysgeusia [Recovered/Resolved]

NARRATIVE: CASE EVENT DATE: 201506
